FAERS Safety Report 17153741 (Version 2)
Quarter: 2020Q2

REPORT INFORMATION
  Report Type: Spontaneous
  Country: US (occurrence: US)
  Receive Date: 20191213
  Receipt Date: 20200414
  Transmission Date: 20200713
  Serious: Yes (Other)
  Sender: FDA-Public Use
  Company Number: US-NOVOPROD-701244

PATIENT
  Age: 77 Year
  Sex: Female

DRUGS (1)
  1. NOVOLIN 70/30 [Suspect]
     Active Substance: INSULIN HUMAN
     Indication: DIABETES MELLITUS
     Dosage: 50 IU, TID (150 UNITS MAX DOSE PER DAY)
     Route: 058

REACTIONS (1)
  - Chronic lymphocytic leukaemia [Not Recovered/Not Resolved]
